FAERS Safety Report 4344716-4 (Version None)
Quarter: 2004Q2

REPORT INFORMATION
  Report Type: 
  Country: None (occurrence: None)
  Receive Date: 20040420
  Receipt Date: 20040406
  Transmission Date: 20050107
  Serious: Yes (Hospitalization, Other)
  Sender: FDA-Public Use
  Company Number: US-JNJFOC-20040301667

PATIENT
  Age: 46 Year
  Sex: Female
  Weight: 67.586 kg

DRUGS (3)
  1. REMICADE [Suspect]
     Indication: RHEUMATOID ARTHRITIS
     Dosage: 3 MG/KG, INTRAVENOUS
     Route: 042
     Dates: start: 20021009
  2. METHOTREXATE [Concomitant]
  3. PREDNISONE [Concomitant]

REACTIONS (12)
  - BLOOD BLISTER [None]
  - EPISTAXIS [None]
  - FLUSHING [None]
  - HAEMATURIA [None]
  - HEADACHE [None]
  - INFUSION RELATED REACTION [None]
  - MOUTH HAEMORRHAGE [None]
  - MUSCLE CRAMP [None]
  - PETECHIAE [None]
  - PYREXIA [None]
  - THROMBOCYTOPENIA [None]
  - URINARY TRACT INFECTION [None]
